FAERS Safety Report 7837937-7 (Version None)
Quarter: 2011Q4

REPORT INFORMATION
  Report Type: 
  Country: None (occurrence: None)
  Receive Date: 20111024
  Receipt Date: 20110713
  Transmission Date: 20120403
  Serious: No
  Sender: FDA-Public Use
  Company Number: US-ABBOTT-11P-163-0838824-00

PATIENT
  Sex: Female
  Weight: 192.95 kg

DRUGS (6)
  1. LUPRON DEPOT [Suspect]
     Indication: UTERINE LEIOMYOMA
  2. LUPRON DEPOT [Suspect]
     Indication: MENORRHAGIA
     Route: 030
     Dates: start: 20110301
  3. LYRICA [Concomitant]
     Indication: PAIN IN EXTREMITY
     Route: 048
     Dates: start: 20090101
  4. ZIAC [Concomitant]
     Indication: HYPERTENSION
     Route: 048
  5. PERCOCET [Concomitant]
     Indication: PAIN IN EXTREMITY
     Route: 048
     Dates: start: 20090101
  6. LOTRIAL [Concomitant]
     Indication: HYPERTENSION
     Route: 048

REACTIONS (3)
  - VAGINAL HAEMORRHAGE [None]
  - HOT FLUSH [None]
  - ABDOMINAL PAIN [None]
